FAERS Safety Report 10432606 (Version 1)
Quarter: 2014Q3

REPORT INFORMATION
  Report Type: Spontaneous
  Country: NO (occurrence: None)
  Receive Date: 20140903
  Receipt Date: 20140903
  Transmission Date: 20150326
  Serious: Yes (Other)
  Sender: FDA-Public Use
  Company Number: 2014SA118880

PATIENT

DRUGS (4)
  1. PROMETHAZINE [Suspect]
     Active Substance: PROMETHAZINE\PROMETHAZINE HYDROCHLORIDE
     Dosage: ; UNKNOWN ; UNKNOWN
  2. DIPHENHYDRAMINE (DIPHENHYDRAMINE) [Suspect]
     Active Substance: DIPHENHYDRAMINE
     Dosage: ; UNKNOWN ; UNKNOWN  UNKNOWN THERAPY DATES
  3. DIAZEPAM (DIAZEPAM) [Suspect]
     Active Substance: DIAZEPAM
     Dosage: ; UKNOWN ; UNKNOWN
  4. MEPROBAMATE (MEPROBAMATE) [Suspect]
     Active Substance: MEPROBAMATE
     Dosage: ; UNKNOWN ; UNKNOWN ; UNKNOWN - UNKNOWN THERAPY DATES

REACTIONS (2)
  - Toxicity to various agents [None]
  - Anticholinergic syndrome [None]
